FAERS Safety Report 6875941-6 (Version None)
Quarter: 2010Q3

REPORT INFORMATION
  Report Type: 
  Country: None (occurrence: None)
  Receive Date: 20100727
  Receipt Date: 20100716
  Transmission Date: 20110219
  Serious: Yes (Hospitalization, Other)
  Sender: FDA-Public Use
  Company Number: JP-JNJFOC-20100706470

PATIENT
  Age: 68 Year
  Sex: Female
  Weight: 43 kg

DRUGS (18)
  1. REMICADE [Suspect]
     Indication: RHEUMATOID ARTHRITIS
     Route: 042
  2. REMICADE [Suspect]
     Route: 042
  3. REMICADE [Suspect]
     Route: 042
  4. REMICADE [Suspect]
     Route: 042
  5. REMICADE [Suspect]
     Route: 042
  6. METHOTREXATE [Concomitant]
     Indication: RHEUMATOID ARTHRITIS
     Route: 048
  7. PREDNISOLONE [Concomitant]
     Route: 048
  8. FOLIC ACID [Concomitant]
     Indication: PROPHYLAXIS
     Route: 048
  9. NEOISCOTIN [Concomitant]
     Indication: ANTIBIOTIC PROPHYLAXIS
     Route: 048
  10. CYTOTEC [Concomitant]
     Route: 048
  11. AMOBAN [Concomitant]
     Route: 048
  12. EVISTA [Concomitant]
     Route: 048
  13. COTRIM [Concomitant]
     Indication: PROPHYLAXIS
  14. PYRIDOXAL PHOSPHATE [Concomitant]
     Indication: PROPHYLAXIS
     Route: 048
  15. POTASSIUM PHOSPHATES [Concomitant]
     Route: 031
  16. CALONAL [Concomitant]
     Indication: PROPHYLAXIS
     Route: 048
  17. ALLEGRA [Concomitant]
     Indication: PROPHYLAXIS
     Route: 048
  18. FAMOTIDINE [Concomitant]
     Route: 048

REACTIONS (1)
  - SYSTEMIC LUPUS ERYTHEMATOSUS RASH [None]
